FAERS Safety Report 9564516 (Version 6)
Quarter: 2013Q4

REPORT INFORMATION
  Report Type: Spontaneous
  Country: US (occurrence: US)
  Receive Date: 20130930
  Receipt Date: 20131216
  Transmission Date: 20140711
  Serious: Yes (Other)
  Sender: FDA-Public Use
  Company Number: US-PFIZER INC-2013277415

PATIENT
  Age: 76 Year
  Sex: Male
  Weight: 91.61 kg

DRUGS (8)
  1. SUTENT [Suspect]
     Indication: RENAL CELL CARCINOMA
     Dosage: 50 MG, UNK
     Dates: start: 20120424
  2. SUTENT [Suspect]
     Dosage: 25 MG, 1X/DAY
     Route: 048
     Dates: start: 20120511
  3. VERAPAMIL [Concomitant]
     Dosage: UNK
  4. LOSARTAN [Concomitant]
     Dosage: UNK
  5. FLOMAX [Concomitant]
     Dosage: UNK
  6. SIMVASTATIN [Concomitant]
     Dosage: UNK
  7. ADVAIR [Concomitant]
     Dosage: UNK, INHALER
     Route: 045
  8. TYLENOL [Concomitant]
     Dosage: UNK

REACTIONS (13)
  - Haematochezia [Unknown]
  - Arthropathy [Not Recovered/Not Resolved]
  - Palmar-plantar erythrodysaesthesia syndrome [Not Recovered/Not Resolved]
  - Hiccups [Unknown]
  - Decreased appetite [Unknown]
  - Blister [Not Recovered/Not Resolved]
  - Nail disorder [Unknown]
  - Weight decreased [Unknown]
  - Nausea [Unknown]
  - Vomiting [Recovered/Resolved]
  - Gait disturbance [Unknown]
  - Constipation [Unknown]
  - Diarrhoea [Unknown]
